FAERS Safety Report 4678417-X (Version None)
Quarter: 2005Q2

REPORT INFORMATION
  Report Type: 
  Country: None (occurrence: None)
  Receive Date: 20050527
  Receipt Date: 20050518
  Transmission Date: 20051028
  Serious: Yes (Other)
  Sender: FDA-Public Use
  Company Number: 2005041846

PATIENT
  Age: 69 Year
  Sex: Female
  Weight: 65.7716 kg

DRUGS (3)
  1. NEURONTIN [Suspect]
     Indication: TRIGEMINAL NEURALGIA
     Dosage: 1000 MG (2 IN 1 D), ORAL
     Route: 048
  2. METOPROLOL TARTRATE [Concomitant]
  3. TEGRETOL [Concomitant]

REACTIONS (4)
  - ADVERSE DRUG REACTION [None]
  - MENINGITIS CHEMICAL [None]
  - RASH [None]
  - SPINAL DISORDER [None]
